FAERS Safety Report 19267379 (Version 1)
Quarter: 2021Q2

REPORT INFORMATION
  Report Type: Spontaneous
  Country: US (occurrence: US)
  Receive Date: 20210518
  Receipt Date: 20210518
  Transmission Date: 20210717
  Serious: No
  Sender: FDA-Public Use
  Company Number: US-BION-008726

PATIENT
  Sex: Female

DRUGS (1)
  1. BIONPHARMA^S IBUPROFEN SOFTGEL 200 MG 300CT [Suspect]
     Active Substance: IBUPROFEN
     Indication: HEADACHE
     Dosage: (STRENGTH 200 MG) ONCE
     Route: 048

REACTIONS (5)
  - Urticaria [Unknown]
  - Oral disorder [Unknown]
  - Drug ineffective [Not Recovered/Not Resolved]
  - Diarrhoea [Not Recovered/Not Resolved]
  - Abdominal pain upper [Not Recovered/Not Resolved]

NARRATIVE: CASE EVENT DATE: 20200509
